FAERS Safety Report 6015219-6 (Version None)
Quarter: 2008Q4

REPORT INFORMATION
  Report Type: 
  Country: None (occurrence: None)
  Receive Date: 20081219
  Receipt Date: 20081219
  Transmission Date: 20090506
  Serious: Yes (Disabling)
  Sender: FDA-Public Use
  Company Number: None

PATIENT
  Age: 60 Year
  Sex: Female
  Weight: 74.8435 kg

DRUGS (1)
  1. VITAMIN D [Suspect]
     Dosage: 1.25 MG TWICE DAILY PO
     Route: 048
     Dates: start: 20081109, end: 20081115

REACTIONS (5)
  - DRUG DISPENSING ERROR [None]
  - FEELING ABNORMAL [None]
  - HYPERVITAMINOSIS D [None]
  - INCORRECT DOSE ADMINISTERED [None]
  - MEDICATION ERROR [None]
